FAERS Safety Report 21529890 (Version 2)
Quarter: 2022Q4

REPORT INFORMATION
  Report Type: Spontaneous
  Country: CA (occurrence: CA)
  Receive Date: 20221031
  Receipt Date: 20221106
  Transmission Date: 20230113
  Serious: Yes (Other)
  Sender: FDA-Public Use
  Company Number: CA-JNJFOC-20221060172

PATIENT
  Age: 87 Year
  Sex: Male
  Weight: 94 kg

DRUGS (3)
  1. REMICADE [Suspect]
     Active Substance: INFLIXIMAB
     Indication: Colitis ulcerative
     Route: 041
  2. AZATHIOPRINE [Concomitant]
     Active Substance: AZATHIOPRINE
     Route: 048
  3. PREDNISONE [Concomitant]
     Active Substance: PREDNISONE

REACTIONS (12)
  - Haemorrhage [Recovered/Resolved]
  - Throat tightness [Recovered/Resolved]
  - Defaecation urgency [Recovered/Resolved]
  - Ear discomfort [Recovered/Resolved]
  - Lacrimation increased [Recovered/Resolved]
  - Weight increased [Recovered/Resolved]
  - COVID-19 [Recovered/Resolved]
  - Hypersensitivity [Recovered/Resolved]
  - Condition aggravated [Recovered/Resolved]
  - Rash [Recovered/Resolved]
  - Dizziness [Recovered/Resolved]
  - Drug ineffective [Recovered/Resolved]
